FAERS Safety Report 18452199 (Version 1)
Quarter: 2020Q4

REPORT INFORMATION
  Report Type: Spontaneous
  Country: US (occurrence: US)
  Receive Date: 20201101
  Receipt Date: 20201101
  Transmission Date: 20210114
  Serious: Yes (Life-Threatening, Hospitalization, Disabling, Other)
  Sender: FDA-Public Use
  Company Number: None

PATIENT
  Age: 76 Year
  Sex: Female
  Weight: 96.75 kg

DRUGS (2)
  1. CLONAZEPAM 0.5MG TABLET [Suspect]
     Active Substance: CLONAZEPAM
     Indication: RESTLESS LEGS SYNDROME
     Dosage: QUANTITY:30 TABLET(S);?
     Route: 048
     Dates: start: 20201020, end: 20201101
  2. CLONAZEPAM 0.5MG TABLET [Suspect]
     Active Substance: CLONAZEPAM
     Indication: INSOMNIA
     Dosage: QUANTITY:30 TABLET(S);?
     Route: 048
     Dates: start: 20201020, end: 20201101

REACTIONS (2)
  - Heart rate increased [None]
  - Drug ineffective [None]

NARRATIVE: CASE EVENT DATE: 20201020
